FAERS Safety Report 8119872-2 (Version None)
Quarter: 2012Q1

REPORT INFORMATION
  Report Type: 
  Country: None (occurrence: None)
  Receive Date: 20120207
  Receipt Date: 20120202
  Transmission Date: 20120608
  Serious: Yes (Hospitalization, Congenital Anomaly, Other)
  Sender: FDA-Public Use
  Company Number: US-PFIZER INC-2011158626

PATIENT
  Sex: Female
  Weight: 3.3 kg

DRUGS (18)
  1. EFFEXOR XR [Suspect]
     Dosage: 225 MG, A DAY
     Route: 064
     Dates: start: 20031030
  2. EFFEXOR XR [Suspect]
     Dosage: 75 MG THREE CAPSULES DAILY
     Route: 064
     Dates: start: 20040101
  3. COLACE [Concomitant]
     Indication: CONSTIPATION
     Dosage: 100 MG, 2X/DAY
     Route: 064
     Dates: start: 20090330
  4. PROTONIX [Concomitant]
     Dosage: 40 MG, ONE TABLET DAILY PO
     Route: 064
     Dates: start: 20090706
  5. METHADONE [Concomitant]
     Dosage: 55 MG, 1X/DAY
     Route: 064
     Dates: start: 20090909
  6. METHADONE [Concomitant]
     Dosage: 25 MG, DAILY
     Route: 064
     Dates: start: 20090220
  7. EFFEXOR XR [Suspect]
     Indication: DEPRESSION
     Dosage: 37.5 MG,  A DAY
     Route: 064
     Dates: start: 20020718
  8. EFFEXOR XR [Suspect]
     Dosage: 75 MG, A DAY
     Route: 064
     Dates: start: 20020701
  9. EFFEXOR XR [Suspect]
     Dosage: 300 MG, IN THE MORNING
     Route: 064
     Dates: start: 20020820
  10. EFFEXOR XR [Suspect]
     Dosage: 150 MG, UNK
     Route: 064
     Dates: start: 20030101
  11. EFFEXOR XR [Suspect]
     Dosage: 75 MG THREE CAPSULES IN THE MORNING
     Route: 064
     Dates: start: 20040101
  12. ONDANSETRON HCL [Concomitant]
     Indication: NAUSEA
     Dosage: 1100 (UNKNOWN UNITS) TAKE ONE TABLET AT BED TIME
     Route: 064
     Dates: start: 20090220
  13. MULTI-VITAMINS [Concomitant]
     Dosage: UNK
     Route: 064
     Dates: start: 20090909
  14. EFFEXOR XR [Suspect]
     Dosage: 150 MG, A DAY
     Route: 064
     Dates: start: 20020801
  15. EFFEXOR XR [Suspect]
     Dosage: DOSE TAPERED (UNKNOWN UNITS)
     Route: 064
     Dates: start: 20030930
  16. EFFEXOR XR [Suspect]
     Dosage: UNK
     Route: 064
     Dates: start: 20040304
  17. KLONOPIN [Concomitant]
     Indication: ANXIETY
     Dosage: 0.25 TO 1 MG,  A DAY PRN
     Route: 064
     Dates: start: 20090220
  18. NEXIUM [Concomitant]
     Dosage: UNK
     Route: 064
     Dates: start: 20090909

REACTIONS (9)
  - TRANSIENT TACHYPNOEA OF THE NEWBORN [None]
  - COARCTATION OF THE AORTA [None]
  - POLYCYTHAEMIA [None]
  - MATERNAL EXPOSURE TIMING UNSPECIFIED [None]
  - PATENT DUCTUS ARTERIOSUS [None]
  - VENTRICULAR SEPTAL DEFECT [None]
  - DRUG WITHDRAWAL SYNDROME NEONATAL [None]
  - ATRIAL SEPTAL DEFECT [None]
  - JAUNDICE NEONATAL [None]
